FAERS Safety Report 15104333 (Version 7)
Quarter: 2019Q1

REPORT INFORMATION
  Report Type: Spontaneous
  Country: US (occurrence: US)
  Receive Date: 20180703
  Receipt Date: 20190125
  Transmission Date: 20190417
  Serious: Yes (Other)
  Sender: FDA-Public Use
  Company Number: US-ACTELION-A-NJ2018-174742

PATIENT
  Age: 66 Year
  Sex: Male
  Weight: 90.7 kg

DRUGS (5)
  1. TRACLEER [Suspect]
     Active Substance: BOSENTAN
     Indication: PULMONARY ARTERIAL HYPERTENSION
     Dosage: 125 MG, BID
     Route: 048
  2. WARFARIN [Concomitant]
     Active Substance: WARFARIN
  3. ADEMPAS [Suspect]
     Active Substance: RIOCIGUAT
     Indication: PRODUCT USED FOR UNKNOWN INDICATION
     Route: 065
  4. ADCIRCA [Concomitant]
     Active Substance: TADALAFIL
  5. OXYGEN. [Concomitant]
     Active Substance: OXYGEN

REACTIONS (12)
  - Joint swelling [Unknown]
  - Peripheral swelling [Unknown]
  - Oxygen saturation decreased [Not Recovered/Not Resolved]
  - Nausea [Unknown]
  - Dyspnoea [Unknown]
  - Insomnia [Unknown]
  - Diarrhoea [Unknown]
  - Pain in extremity [Unknown]
  - Pain [Unknown]
  - Quality of life decreased [Unknown]
  - Headache [Unknown]
  - Arthralgia [Unknown]

NARRATIVE: CASE EVENT DATE: 20180805
